FAERS Safety Report 5908821-0 (Version None)
Quarter: 2008Q3

REPORT INFORMATION
  Report Type: 
  Country: None (occurrence: None)
  Receive Date: 20080929
  Receipt Date: 20080910
  Transmission Date: 20090109
  Serious: Yes (Hospitalization)
  Sender: FDA-Public Use
  Company Number: TPA2008A01438

PATIENT
  Age: 73 Year
  Sex: Female
  Weight: 81.6475 kg

DRUGS (11)
  1. ACTOS [Suspect]
     Indication: TYPE 2 DIABETES MELLITUS
     Dosage: 45 MG, 1 IN 1 D, PER ORAL
     Route: 048
     Dates: start: 20030910
  2. CLONIDINE [Concomitant]
  3. HYDROCHLOROTHIAZIDE/ TRIAMTERENE (HYDROCHLOROTHIAZIDE, TRIAMTERENE) [Concomitant]
  4. NEXIUM [Concomitant]
  5. NEURONTIN [Concomitant]
  6. ALLOPURINOL [Concomitant]
  7. GLYBURIDE [Concomitant]
  8. IRON (IRON) [Concomitant]
  9. ALBUTEROL [Concomitant]
  10. TRAVATAN [Concomitant]
  11. ACETAMINOPHEN [Concomitant]

REACTIONS (4)
  - BLINDNESS UNILATERAL [None]
  - CATARACT [None]
  - COLON CANCER [None]
  - MYOCARDIAL INFARCTION [None]
